FAERS Safety Report 6806655-6 (Version None)
Quarter: 2010Q2

REPORT INFORMATION
  Report Type: 
  Country: None (occurrence: None)
  Receive Date: 20100629
  Receipt Date: 20080302
  Transmission Date: 20101027
  Serious: No
  Sender: FDA-Public Use
  Company Number: US-PFIZER INC-2008029585

PATIENT
  Sex: Male
  Weight: 89.545 kg

DRUGS (5)
  1. VIAGRA [Suspect]
     Indication: ERECTILE DYSFUNCTION
     Route: 048
     Dates: start: 19980101
  2. ACE INHIBITOR NOS [Concomitant]
     Dates: start: 19830101
  3. TAMSULOSIN HYDROCHLORIDE [Concomitant]
  4. ACETYLSALICYLIC ACID [Concomitant]
  5. VITAMINS [Concomitant]

REACTIONS (3)
  - ABDOMINAL DISCOMFORT [None]
  - BLOOD URINE PRESENT [None]
  - EJACULATION FAILURE [None]
